FAERS Safety Report 7009615-8 (Version None)
Quarter: 2010Q3

REPORT INFORMATION
  Report Type: 
  Country: None (occurrence: None)
  Receive Date: 20100923
  Receipt Date: 20100912
  Transmission Date: 20110219
  Serious: Yes (Other)
  Sender: FDA-Public Use
  Company Number: US-PFIZER INC-2010115064

PATIENT
  Sex: Male

DRUGS (2)
  1. CHANTIX [Suspect]
     Indication: SMOKING CESSATION THERAPY
     Dosage: UNK
     Route: 048
     Dates: start: 20070101
  2. HYDROCODONE [Interacting]
     Indication: PAIN
     Dosage: 500 MG, 2X/DAY

REACTIONS (4)
  - AGGRESSION [None]
  - DRUG INTERACTION [None]
  - NERVOUSNESS [None]
  - SURGERY [None]
